FAERS Safety Report 9122727 (Version 1)
Quarter: 2013Q1

REPORT INFORMATION
  Report Type: Spontaneous
  Country: US (occurrence: None)
  Receive Date: 20130225
  Receipt Date: 20130225
  Transmission Date: 20140127
  Serious: Yes (Other)
  Sender: FDA-Public Use
  Company Number: None

PATIENT
  Age: 5 Year
  Sex: Male

DRUGS (3)
  1. SINGULAIR [Suspect]
     Indication: ASTHMA
     Dosage: 1CHEWABLE TABLET DAILY PO
     Route: 048
     Dates: start: 20121015, end: 20130215
  2. BUDESONIDA [Concomitant]
  3. SALBUTAMOL [Concomitant]

REACTIONS (5)
  - Nightmare [None]
  - Aggression [None]
  - Depressed mood [None]
  - Suicidal behaviour [None]
  - Fear [None]
